FAERS Safety Report 13232846 (Version 3)
Quarter: 2017Q2

REPORT INFORMATION
  Report Type: Report from Study
  Country: None (occurrence: CA)
  Receive Date: 20170214
  Receipt Date: 20170424
  Transmission Date: 20170830
  Serious: Yes (Hospitalization, Other)
  Sender: FDA-Public Use
  Company Number: CA-ABBVIE-17P-028-1872686-00

PATIENT
  Sex: Male

DRUGS (1)
  1. HUMIRA [Suspect]
     Active Substance: ADALIMUMAB
     Indication: CROHN^S DISEASE
     Route: 058
     Dates: start: 20131125, end: 20170116

REACTIONS (4)
  - Drug ineffective [Not Recovered/Not Resolved]
  - Small intestinal perforation [Not Recovered/Not Resolved]
  - Intestinal obstruction [Unknown]
  - Post procedural infection [Unknown]

NARRATIVE: CASE EVENT DATE: 2017
